FAERS Safety Report 13170289 (Version 4)
Quarter: 2017Q1

REPORT INFORMATION
  Report Type: Report from Study
  Country: CA (occurrence: CA)
  Receive Date: 20170131
  Receipt Date: 20170316
  Transmission Date: 20170428
  Serious: Yes (Death, Hospitalization, Other)
  Sender: FDA-Public Use
  Company Number: PHHY2016CA179022

PATIENT
  Age: 90 Year
  Sex: Male

DRUGS (5)
  1. TAFINLAR [Suspect]
     Active Substance: DABRAFENIB MESYLATE
     Dosage: 300 MG, QD (AROUND FEB 1ST OR 2ND, 2017)
     Route: 048
     Dates: end: 20170209
  2. TAFINLAR [Suspect]
     Active Substance: DABRAFENIB MESYLATE
     Indication: METASTATIC MALIGNANT MELANOMA
     Dosage: 300 MG, QD
     Route: 048
     Dates: start: 20161221
  3. TAFINLAR [Suspect]
     Active Substance: DABRAFENIB MESYLATE
     Dosage: 75 MG, BID
     Route: 048
  4. MEKINIST [Suspect]
     Active Substance: TRAMETINIB DIMETHYL SULFOXIDE
     Dosage: 2 MG, QD (AROUND FEB 1ST OR 2ND, 2017)
     Route: 048
     Dates: end: 20170209
  5. MEKINIST [Suspect]
     Active Substance: TRAMETINIB DIMETHYL SULFOXIDE
     Indication: METASTATIC MALIGNANT MELANOMA
     Dosage: 2 MG, QD
     Route: 048
     Dates: start: 20161221

REACTIONS (13)
  - Malaise [Unknown]
  - Dysstasia [Unknown]
  - Malignant neoplasm progression [Unknown]
  - Asthenia [Unknown]
  - Dehydration [Unknown]
  - Tremor [Unknown]
  - Chills [Recovering/Resolving]
  - Gait disturbance [Unknown]
  - Fall [Unknown]
  - Body temperature increased [Recovering/Resolving]
  - Incorrect dose administered [Unknown]
  - Respiratory failure [Fatal]
  - Metastases to lymph nodes [Unknown]

NARRATIVE: CASE EVENT DATE: 20170117
